FAERS Safety Report 9836150 (Version 1)
Quarter: 2014Q1

REPORT INFORMATION
  Report Type: Spontaneous
  Country: US (occurrence: US)
  Receive Date: 20140123
  Receipt Date: 20140123
  Transmission Date: 20141002
  Serious: No
  Sender: FDA-Public Use
  Company Number: US-009507513-1401USA004422

PATIENT
  Age: 62 Year
  Sex: Male

DRUGS (2)
  1. LIPTRUZET [Suspect]
     Indication: HYPERLIPIDAEMIA
     Dosage: 10/20 MG, QD
     Route: 048
     Dates: start: 201309, end: 20131215
  2. LIPTRUZET [Suspect]
     Indication: DIABETES MELLITUS

REACTIONS (3)
  - Flank pain [Recovered/Resolved]
  - Myalgia [Recovered/Resolved]
  - Myalgia [Recovered/Resolved]
